FAERS Safety Report 18387548 (Version 6)
Quarter: 2021Q3

REPORT INFORMATION
  Report Type: Report from Study
  Country: US (occurrence: US)
  Receive Date: 20201015
  Receipt Date: 20210929
  Transmission Date: 20211014
  Serious: No
  Sender: FDA-Public Use
  Company Number: NVSC2020US270641

PATIENT
  Sex: Female

DRUGS (2)
  1. PIQRAY [Suspect]
     Active Substance: ALPELISIB
     Indication: PRODUCT USED FOR UNKNOWN INDICATION
     Dosage: UNK
     Route: 048
  2. PIQRAY [Suspect]
     Active Substance: ALPELISIB
     Dosage: 250 MG, QOD
     Route: 048

REACTIONS (8)
  - Irritable bowel syndrome [Unknown]
  - Hiccups [Unknown]
  - Flatulence [Unknown]
  - Abdominal discomfort [Unknown]
  - Hyperglycaemia [Unknown]
  - Dehydration [Unknown]
  - Diarrhoea [Unknown]
  - Dyspepsia [Unknown]
